FAERS Safety Report 9461863 (Version 3)
Quarter: 2014Q1

REPORT INFORMATION
  Report Type: Spontaneous
  Country: US (occurrence: US)
  Receive Date: 20130816
  Receipt Date: 20140212
  Transmission Date: 20141002
  Serious: Yes (Hospitalization)
  Sender: FDA-Public Use
  Company Number: US-BAYER-2013-098552

PATIENT
  Age: 27 Year
  Sex: Female

DRUGS (11)
  1. MIRENA [Suspect]
     Indication: CONTRACEPTION
     Dosage: 20 MCG/24HR, CONT
     Route: 015
     Dates: start: 20110603, end: 20120911
  2. MIRENA [Suspect]
     Indication: CONTRACEPTION
     Dosage: 20 MCG/24HR, CONT
     Route: 015
     Dates: start: 2006, end: 2009
  3. CYSTEX [Concomitant]
     Route: 048
  4. DICYCLOMINE HCL [Concomitant]
     Dosage: 10 MG, QID
     Route: 048
  5. RANITIDINE HYDROCHLORIDE [Concomitant]
     Dosage: 150 MG, BID
     Route: 048
  6. SERTRALINE HYDROCHLORIDE [Concomitant]
     Dosage: 100 MG, DAILY
     Route: 048
  7. TRAZODONE HCL [Concomitant]
     Dosage: 50 MG, NIGHTLY
     Route: 048
  8. PANTOPRAZOLE SODIUM [Concomitant]
     Dosage: 20 MG, DAILY
     Route: 048
  9. CRANBERRY [Concomitant]
     Dosage: 1 TABLET DAILY
     Route: 048
  10. CENTRUM [Concomitant]
     Dosage: 1 TABLET DAILY
     Route: 048
  11. PERCOCET [Concomitant]

REACTIONS (4)
  - Uterine perforation [None]
  - Appendix disorder [None]
  - Pain [None]
  - Emotional distress [None]
